FAERS Safety Report 10899873 (Version 1)
Quarter: 2015Q1

REPORT INFORMATION
  Report Type: Spontaneous
  Country: PH (occurrence: PH)
  Receive Date: 20150310
  Receipt Date: 20150310
  Transmission Date: 20150721
  Serious: Yes (Death, Other)
  Sender: FDA-Public Use
  Company Number: PH-009507513-1503PHL003712

PATIENT
  Sex: Female

DRUGS (2)
  1. FOSAVANCE [Suspect]
     Active Substance: ALENDRONATE SODIUM\CHOLECALCIFEROL
     Indication: OSTEOPOROSIS
     Dosage: STRENGTH:70MG/ 5600IU, 1 TABLET, EVERY MONDAY
     Route: 048
     Dates: start: 2011
  2. CALTRATE PLUS (BORON (UNSPECIFIED) (+) CALCIUM CARBONATE (+) CHOLECALC [Concomitant]

REACTIONS (3)
  - Hypovolaemic shock [Fatal]
  - Pneumonia [Fatal]
  - Gastrointestinal haemorrhage [Fatal]
